FAERS Safety Report 25792739 (Version 1)
Quarter: 2025Q3

REPORT INFORMATION
  Report Type: Spontaneous
  Country: GB (occurrence: GB)
  Receive Date: 20250911
  Receipt Date: 20250911
  Transmission Date: 20251020
  Serious: Yes (Other)
  Sender: SANDOZ
  Company Number: GB-SANDOZ-SDZ2025GB066099

PATIENT
  Age: 81 Year
  Sex: Female

DRUGS (3)
  1. RANIBIZUMAB [Suspect]
     Active Substance: RANIBIZUMAB
     Indication: Neovascular age-related macular degeneration
     Dates: start: 20211018, end: 20240903
  2. VABYSMO [Suspect]
     Active Substance: FARICIMAB-SVOA
     Indication: Neovascular age-related macular degeneration
     Route: 065
     Dates: start: 20241114, end: 20241219
  3. VABYSMO [Suspect]
     Active Substance: FARICIMAB-SVOA
     Route: 065
     Dates: start: 202501

REACTIONS (5)
  - Uveitis [Unknown]
  - Iridocyclitis [Recovered/Resolved with Sequelae]
  - Vitritis [Recovered/Resolved with Sequelae]
  - Eye inflammation [Recovered/Resolved with Sequelae]
  - Iritis [Recovered/Resolved with Sequelae]

NARRATIVE: CASE EVENT DATE: 20241219
